FAERS Safety Report 6940023-1 (Version None)
Quarter: 2010Q3

REPORT INFORMATION
  Report Type: 
  Country: None (occurrence: None)
  Receive Date: 20100825
  Receipt Date: 20100813
  Transmission Date: 20110219
  Serious: Yes (Hospitalization)
  Sender: FDA-Public Use
  Company Number: US-PFIZER INC-2010102859

PATIENT
  Sex: Male
  Weight: 113 kg

DRUGS (4)
  1. LYRICA [Suspect]
     Indication: NEUROPATHY PERIPHERAL
     Dosage: UNK, 2X/DAY
     Route: 048
     Dates: start: 20090501, end: 20090501
  2. SITAGLIPTIN [Concomitant]
     Dosage: UNK
  3. DARIFENACIN [Concomitant]
     Dosage: UNK
  4. LISINOPRIL [Concomitant]
     Dosage: UNK

REACTIONS (1)
  - BLINDNESS UNILATERAL [None]
